FAERS Safety Report 4519951-2 (Version None)
Quarter: 2004Q4

REPORT INFORMATION
  Report Type: 
  Country: None (occurrence: None)
  Receive Date: 20041201
  Receipt Date: 20041201
  Transmission Date: 20050328
  Serious: Yes (Hospitalization)
  Sender: FDA-Public Use
  Company Number: None

PATIENT
  Age: 58 Year
  Sex: Male
  Weight: 99.8 kg

DRUGS (14)
  1. DILANTIN [Suspect]
     Indication: CONVULSION
     Dosage: 900MG,  300MG TI, ORAL
     Route: 048
  2. POTASSIUM CHLORIDE [Concomitant]
  3. SPIRONOLACTONE [Concomitant]
  4. FLUNISOLIDE [Concomitant]
  5. IRBESARTAN [Concomitant]
  6. DOCUSATE [Concomitant]
  7. FUROSEMIDE [Concomitant]
  8. QUETIAPINE FUMARATE [Concomitant]
  9. VITAMIN E [Concomitant]
  10. AZITHROMYCIN [Concomitant]
  11. DILTIAZEM [Concomitant]
  12. ATENOLOL [Concomitant]
  13. ALBUTEROL SULFATE AND IPRATROPIUM BROMIDE [Concomitant]
  14. HALOPERIDOL [Concomitant]

REACTIONS (1)
  - DRUG TOXICITY [None]
